FAERS Safety Report 21298543 (Version 2)
Quarter: 2022Q3

REPORT INFORMATION
  Report Type: Spontaneous
  Country: PL (occurrence: PL)
  Receive Date: 20220906
  Receipt Date: 20220919
  Transmission Date: 20221026
  Serious: Yes (Other)
  Sender: FDA-Public Use
  Company Number: PL-AMGEN-POLSP2022147543

PATIENT
  Age: 71 Year
  Sex: Female

DRUGS (7)
  1. IRINOTECAN HYDROCHLORIDE [Suspect]
     Active Substance: IRINOTECAN HYDROCHLORIDE
     Indication: Colorectal cancer metastatic
     Dosage: UNK, CYCLIC
     Route: 065
     Dates: start: 202110, end: 2022
  2. FILGRASTIM [Suspect]
     Active Substance: FILGRASTIM
     Indication: Prophylaxis
     Dosage: UNK, CYCLIC
     Route: 065
     Dates: start: 2021
  3. VECTIBIX [Suspect]
     Active Substance: PANITUMUMAB
     Indication: Colorectal cancer metastatic
     Dosage: UNK, CYCLIC
     Route: 065
     Dates: start: 202110, end: 2021
  4. VECTIBIX [Suspect]
     Active Substance: PANITUMUMAB
     Dosage: UNK, CYCLIC
     Route: 065
     Dates: start: 2021, end: 2022
  5. VECTIBIX [Suspect]
     Active Substance: PANITUMUMAB
     Dosage: DE-ESCALATE TREATMENT
     Route: 065
     Dates: start: 2022
  6. FLUOROURACIL [Suspect]
     Active Substance: FLUOROURACIL
     Indication: Colorectal cancer metastatic
     Dosage: UNK, CYCLIC
     Route: 065
     Dates: start: 202110
  7. LEUCOVORIN [Suspect]
     Active Substance: LEUCOVORIN
     Indication: Colorectal cancer metastatic
     Dosage: UNK, CYCLIC
     Route: 065
     Dates: start: 202110

REACTIONS (5)
  - Neutropenia [Unknown]
  - Anaemia [Unknown]
  - Onychoclasis [Unknown]
  - Rash pustular [Unknown]
  - Dry skin [Unknown]

NARRATIVE: CASE EVENT DATE: 20210101
